FAERS Safety Report 15602561 (Version 1)
Quarter: 2018Q4

REPORT INFORMATION
  Report Type: Spontaneous
  Country: US (occurrence: US)
  Receive Date: 20181109
  Receipt Date: 20181109
  Transmission Date: 20190205
  Serious: No
  Sender: FDA-Public Use
  Company Number: US-SA-2018SA303181

PATIENT

DRUGS (1)
  1. CLOFARABINE. [Suspect]
     Active Substance: CLOFARABINE
     Dosage: UNK UNK, UNK
     Route: 065

REACTIONS (1)
  - Therapeutic response decreased [Unknown]
